FAERS Safety Report 16691875 (Version 1)
Quarter: 2019Q3

REPORT INFORMATION
  Report Type: Spontaneous
  Country: NL (occurrence: NL)
  Receive Date: 20190812
  Receipt Date: 20190812
  Transmission Date: 20191004
  Serious: Yes (Death, Hospitalization)
  Sender: FDA-Public Use
  Company Number: NL-ACCORD-151101

PATIENT
  Age: 17 Year
  Sex: Male
  Weight: 97 kg

DRUGS (2)
  1. LEVETIRACETAM. [Suspect]
     Active Substance: LEVETIRACETAM
     Indication: EPILEPSY
     Dosage: 2X A DAY 3 PIECES, STRENGTH: 250 MG, IF SO, PLEASE INDICATE HERE WHAT HAPPENED: NO
     Dates: start: 20181231, end: 20190314
  2. ETOPOSIDE. [Concomitant]
     Active Substance: ETOPOSIDE

REACTIONS (9)
  - Neutropenia [Fatal]
  - Haemophagocytic lymphohistiocytosis [Fatal]
  - Pericarditis [Fatal]
  - Myocarditis [Fatal]
  - Pyrexia [Fatal]
  - Sepsis [Fatal]
  - Hepatic failure [Fatal]
  - Rash [Not Recovered/Not Resolved]
  - Renal failure [Fatal]

NARRATIVE: CASE EVENT DATE: 20190314
